FAERS Safety Report 8083916-7 (Version None)
Quarter: 2012Q1

REPORT INFORMATION
  Report Type: 
  Country: None (occurrence: None)
  Receive Date: 20120128
  Receipt Date: 20110113
  Transmission Date: 20120608
  Serious: No
  Sender: FDA-Public Use
  Company Number: US-ABBOTT-11P-163-0697377-00

PATIENT
  Age: 30 Year
  Sex: Female

DRUGS (3)
  1. PLAQUENIL [Concomitant]
     Indication: PRODUCT USED FOR UNKNOWN INDICATION
     Route: 048
  2. HUMIRA [Suspect]
     Indication: RHEUMATOID ARTHRITIS
     Dates: start: 20100101
  3. LORTAB [Concomitant]
     Indication: PAIN
     Route: 048

REACTIONS (4)
  - INFLUENZA LIKE ILLNESS [None]
  - BLADDER DISORDER [None]
  - INJECTION SITE PAIN [None]
  - DRUG EFFECT DECREASED [None]
